FAERS Safety Report 7201404-4 (Version None)
Quarter: 2010Q4

REPORT INFORMATION
  Report Type: 
  Country: None (occurrence: None)
  Receive Date: 20101216
  Receipt Date: 20101206
  Transmission Date: 20110411
  Serious: Yes (Other)
  Sender: FDA-Public Use
  Company Number: 2010SP063670

PATIENT
  Sex: Female

DRUGS (1)
  1. MARVELON 28 (DESOGESTREL/ETHINYLESTRADIOL /00570801/) [Suspect]
     Indication: MENSTRUATION IRREGULAR
     Dosage: 1 DF;QD;PO
     Route: 048
     Dates: start: 20090101

REACTIONS (2)
  - C-REACTIVE PROTEIN INCREASED [None]
  - PNEUMONIA [None]
